FAERS Safety Report 7984674-4 (Version None)
Quarter: 2011Q4

REPORT INFORMATION
  Report Type: 
  Country: None (occurrence: None)
  Receive Date: 20111216
  Receipt Date: 20111104
  Transmission Date: 20120403
  Serious: No
  Sender: FDA-Public Use
  Company Number: US-GLAXOSMITHKLINE-A0925213A

PATIENT
  Age: 80 Year
  Sex: Male

DRUGS (7)
  1. PROVENTIL [Concomitant]
  2. AVODART [Concomitant]
  3. PROMACTA [Suspect]
     Indication: AUTOIMMUNE THROMBOCYTOPENIA
     Dosage: 50MG PER DAY
     Route: 048
     Dates: start: 20110325
  4. FORADIL [Concomitant]
  5. SIMVASTATIN [Concomitant]
  6. DOXAZOSIN MESYLATE [Concomitant]
  7. OMEPRAZOLE [Concomitant]

REACTIONS (5)
  - CONTUSION [None]
  - RENAL IMPAIRMENT [None]
  - RENAL CYST [None]
  - OEDEMA PERIPHERAL [None]
  - RASH [None]
